FAERS Safety Report 4620962-7 (Version None)
Quarter: 2005Q1

REPORT INFORMATION
  Report Type: 
  Country: None (occurrence: None)
  Receive Date: 20050315
  Receipt Date: 20050207
  Transmission Date: 20050727
  Serious: No
  Sender: FDA-Public Use
  Company Number: US-YAMANOUCHI-YPA20050067

PATIENT
  Age: 83 Year
  Sex: Male

DRUGS (5)
  1. VESICARE [Suspect]
     Indication: NOCTURIA
     Dosage: 5 MG DAILY PO
     Route: 048
     Dates: start: 20050202, end: 20050206
  2. WELLBUTRIN [Concomitant]
  3. KLONOPIN [Concomitant]
  4. ZOCOR [Concomitant]
  5. ASPIRIN [Concomitant]

REACTIONS (1)
  - DIARRHOEA [None]
